FAERS Safety Report 5015623-9 (Version None)
Quarter: 2006Q2

REPORT INFORMATION
  Report Type: 
  Country: None (occurrence: None)
  Receive Date: 20060601
  Receipt Date: 20060522
  Transmission Date: 20061013
  Serious: Yes (Hospitalization)
  Sender: FDA-Public Use
  Company Number: FR-SANOFI-SYNTHELABO-A02200601343

PATIENT
  Age: 29 Year
  Sex: Male
  Weight: 72 kg

DRUGS (6)
  1. LOVENOX [Concomitant]
     Indication: STENT PLACEMENT
     Route: 058
     Dates: start: 20060403
  2. ASPIRIN [Concomitant]
     Indication: STENT PLACEMENT
     Route: 048
     Dates: start: 20060403
  3. RAPAMUNE [Concomitant]
     Indication: RENAL TRANSPLANT
     Dosage: UNK
     Route: 048
     Dates: start: 20060201
  4. CORTANCYL [Concomitant]
     Indication: RENAL TRANSPLANT
     Dosage: UNK
     Route: 048
     Dates: start: 20060201
  5. CELLCEPT [Concomitant]
     Indication: RENAL TRANSPLANT
     Dosage: UNK
     Route: 065
     Dates: start: 20060201
  6. PLAVIX [Suspect]
     Indication: STENT PLACEMENT
     Route: 048
     Dates: start: 20060403, end: 20060419

REACTIONS (4)
  - ACUTE PULMONARY OEDEMA [None]
  - ANAEMIA [None]
  - BLOOD LACTATE DEHYDROGENASE INCREASED [None]
  - THROMBOCYTOPENIA [None]
